FAERS Safety Report 5706445-1 (Version None)
Quarter: 2008Q2

REPORT INFORMATION
  Report Type: 
  Country: None (occurrence: None)
  Receive Date: 20080414
  Receipt Date: 20080409
  Transmission Date: 20081010
  Serious: Yes (Death, Hospitalization)
  Sender: FDA-Public Use
  Company Number: 2008-01245

PATIENT
  Age: 54 Year
  Sex: Male

DRUGS (2)
  1. VELCADE [Suspect]
     Indication: MULTIPLE MYELOMA
     Dates: start: 20080211, end: 20080221
  2. DOXIL [Suspect]
     Indication: MULTIPLE MYELOMA
     Dosage: 64 MG
     Dates: start: 20080214, end: 20080214

REACTIONS (6)
  - CHILLS [None]
  - COUGH [None]
  - DISEASE PROGRESSION [None]
  - DYSPNOEA [None]
  - LUNG INFILTRATION [None]
  - PYREXIA [None]
